FAERS Safety Report 4973347-8 (Version None)
Quarter: 2006Q2

REPORT INFORMATION
  Report Type: 
  Country: None (occurrence: None)
  Receive Date: 20060414
  Receipt Date: 20060410
  Transmission Date: 20061013
  Serious: Yes (Hospitalization)
  Sender: FDA-Public Use
  Company Number: ES-BOEHRINGER INGELHEIM PHARMACEUTICALS, INC.-2006-DE-01888GD

PATIENT
  Age: 63 Year
  Sex: Male

DRUGS (3)
  1. PERSANTIN [Suspect]
     Route: 048
  2. NITRODERM [Suspect]
     Route: 062
  3. ALMAX [Suspect]
     Route: 048

REACTIONS (1)
  - GASTRIC ULCER HAEMORRHAGE [None]
